FAERS Safety Report 5698410-8 (Version None)
Quarter: 2008Q2

REPORT INFORMATION
  Report Type: 
  Country: None (occurrence: None)
  Receive Date: 20080408
  Receipt Date: 20080219
  Transmission Date: 20081010
  Serious: Yes (Other)
  Sender: FDA-Public Use
  Company Number: US-MERCK-0802USA04477

PATIENT
  Age: 79 Year
  Sex: Female

DRUGS (6)
  1. ZETIA [Suspect]
     Indication: BLOOD CHOLESTEROL INCREASED
     Route: 048
     Dates: start: 20060401, end: 20071201
  2. LIPITOR [Concomitant]
     Route: 065
  3. CADUET [Concomitant]
     Route: 065
  4. VASOTEC [Concomitant]
     Route: 048
  5. ATENOLOL [Concomitant]
     Route: 065
  6. [THERAPY UNSPECIFIED] [Concomitant]
     Indication: FLUID RETENTION
     Route: 065

REACTIONS (2)
  - ARTERIOSCLEROSIS [None]
  - MYALGIA [None]
